FAERS Safety Report 4434447-4 (Version None)
Quarter: 2004Q3

REPORT INFORMATION
  Report Type: 
  Country: None (occurrence: None)
  Receive Date: 20040726
  Receipt Date: 20040318
  Transmission Date: 20050211
  Serious: No
  Sender: FDA-Public Use
  Company Number: USA040259300

PATIENT
  Age: 46 Year
  Sex: Female
  Weight: 50 kg

DRUGS (7)
  1. FORTEO [Suspect]
     Indication: OSTEOPOROSIS
     Dosage: 20 UG/1 DAY
     Dates: start: 20040101
  2. COUMADIN [Concomitant]
  3. NEXIUM [Concomitant]
  4. REGLAN [Concomitant]
  5. ATIVAN [Concomitant]
  6. LEXAPRO [Concomitant]
  7. NORPACE [Concomitant]

REACTIONS (5)
  - INJECTION SITE BURNING [None]
  - INJECTION SITE ERYTHEMA [None]
  - INJECTION SITE HAEMORRHAGE [None]
  - INJECTION SITE NODULE [None]
  - INJECTION SITE PAIN [None]
